FAERS Safety Report 16355017 (Version 3)
Quarter: 2020Q2

REPORT INFORMATION
  Report Type: Report from Study
  Country: US (occurrence: US)
  Receive Date: 20190524
  Receipt Date: 20200629
  Transmission Date: 20200713
  Serious: Yes (Hospitalization, Other)
  Sender: FDA-Public Use
  Company Number: US-STASON PHARMACEUTICALS, INC.-2067451

PATIENT
  Age: 12 Year
  Sex: Male
  Weight: 39.3 kg

DRUGS (1)
  1. MERCAPTOPURINE. [Suspect]
     Active Substance: MERCAPTOPURINE
     Route: 048
     Dates: start: 20190318

REACTIONS (3)
  - Leukopenia [None]
  - Herpes zoster [None]
  - Upper respiratory tract infection [None]
